FAERS Safety Report 22958390 (Version 2)
Quarter: 2024Q1

REPORT INFORMATION
  Report Type: Report from Study
  Country: IT (occurrence: IT)
  Receive Date: 20230919
  Receipt Date: 20240129
  Transmission Date: 20240409
  Serious: Yes (Death, Hospitalization, Other)
  Sender: FDA-Public Use
  Company Number: IT-002147023-NVSC2020IT034522

PATIENT
  Age: 74 Year
  Sex: Female
  Weight: 50 kg

DRUGS (6)
  1. LETROZOLE [Suspect]
     Active Substance: LETROZOLE
     Indication: Breast cancer
     Dosage: 2.5 MG
     Route: 048
     Dates: start: 20180821, end: 20200130
  2. RIBOCICLIB [Suspect]
     Active Substance: RIBOCICLIB
     Indication: HER2 negative breast cancer
     Dosage: UNK
     Route: 048
     Dates: end: 20200131
  3. ENOXAPARIN SODIUM [Concomitant]
     Active Substance: ENOXAPARIN SODIUM
     Indication: Temporary transvenous pacing
     Dosage: 4000 IU, BID
     Route: 065
     Dates: start: 20180724
  4. ACETAMINOPHEN [Concomitant]
     Active Substance: ACETAMINOPHEN
     Indication: Pain
     Dosage: 1000 MG
     Route: 065
     Dates: start: 20180919
  5. XANAX [Concomitant]
     Active Substance: ALPRAZOLAM
     Indication: Anxiety
     Dosage: 0.25 MG
     Route: 065
     Dates: start: 20180821
  6. XANAX [Concomitant]
     Active Substance: ALPRAZOLAM
     Indication: Depression

REACTIONS (2)
  - SARS-CoV-2 test positive [Fatal]
  - Atrial flutter [Recovered/Resolved]

NARRATIVE: CASE EVENT DATE: 20200103
